FAERS Safety Report 10378245 (Version 1)
Quarter: 2014Q1

REPORT INFORMATION
  Report Type: Spontaneous
  Country: US (occurrence: None)
  Receive Date: 20140306
  Receipt Date: 20140306
  Transmission Date: 20141002
  Serious: Yes (Other)
  Sender: FDA-Public Use
  Company Number: 163-21880-13013499

PATIENT
  Age: 78 Year
  Sex: Female

DRUGS (9)
  1. REVLIMID (LENALIDOMIDE) (CAPSULES) [Suspect]
     Indication: PLASMA CELL MYELOMA
     Dosage: 10 MG, 21 IN 21 D, PO
     Route: 048
     Dates: start: 20121214
  2. ACYCLOVIR (ACICLOVIR) (UNKNOWN) [Concomitant]
  3. DEXAMETHASONE (DEXAMETHASONE) (UNKNOWN) [Concomitant]
  4. GABAPENTIN (GABAPENTIN) (UNKNOWN) (GABAPENTIN) [Concomitant]
  5. LORTAB (VICODIN) (UNKNOWN) [Concomitant]
  6. MELATONIN (MELATONIN) (UNKNOWN) [Concomitant]
  7. METOPROLOL TARTRATE (METOPROLOL TARTRATE) (UNKNOWN) [Concomitant]
  8. NIACIN (NICOTINIC ACID) (UNKNOWN) [Concomitant]
  9. PANTOPRAZOLE SODIUM (PANTOPRAZOLE SODIUM) (UNKNOWN) [Concomitant]

REACTIONS (1)
  - Thrombosis [None]
